FAERS Safety Report 17778451 (Version 2)
Quarter: 2020Q2

REPORT INFORMATION
  Report Type: Spontaneous
  Country: BR (occurrence: BR)
  Receive Date: 20200514
  Receipt Date: 20200608
  Transmission Date: 20200714
  Serious: Yes (Death, Other)
  Sender: FDA-Public Use
  Company Number: BR-B.I. PHARMACEUTICALS,INC./RIDGEFIELD-2020-BI-024096

PATIENT
  Sex: Female

DRUGS (4)
  1. OFEV [Suspect]
     Active Substance: NINTEDANIB
     Indication: LUNG ADENOCARCINOMA
     Route: 065
  2. DOCETAXEL. [Concomitant]
     Active Substance: DOCETAXEL
     Indication: LUNG ADENOCARCINOMA
     Route: 065
  3. OFEV [Suspect]
     Active Substance: NINTEDANIB
     Indication: IDIOPATHIC PULMONARY FIBROSIS
  4. DOCETAXEL. [Concomitant]
     Active Substance: DOCETAXEL
     Indication: IDIOPATHIC PULMONARY FIBROSIS

REACTIONS (3)
  - Death [Fatal]
  - Malignant neoplasm progression [Unknown]
  - Idiopathic pulmonary fibrosis [Unknown]

NARRATIVE: CASE EVENT DATE: 201912
